FAERS Safety Report 8612873-7 (Version None)
Quarter: 2012Q3

REPORT INFORMATION
  Report Type: 
  Country: None (occurrence: None)
  Receive Date: 20120822
  Receipt Date: 20110819
  Transmission Date: 20120928
  Serious: No
  Sender: FDA-Public Use
  Company Number: US-ASTRAZENECA-2011SE44148

PATIENT
  Age: 73 Year
  Sex: Female
  Weight: 57.2 kg

DRUGS (9)
  1. SIMVASTATIN [Concomitant]
  2. LISINOPRIL AND HYDROCHLOROTHIAZIDE [Concomitant]
  3. PRIMARIN [Concomitant]
  4. ALBUTEROL [Concomitant]
  5. TRAVATAN EYE DROPS [Concomitant]
  6. SYMBICORT [Suspect]
     Indication: ASTHMA
     Dosage: 160/4.5 MCG, 2 PUFFS, EVERY 12 HOURS
     Route: 055
  7. AMBIEN [Concomitant]
  8. AZOPT EYE DROPS [Concomitant]
  9. OMEPRAZOLE [Concomitant]

REACTIONS (2)
  - VOCAL CORD DISORDER [None]
  - DYSPHONIA [None]
